FAERS Safety Report 23257768 (Version 1)
Quarter: 2023Q4

REPORT INFORMATION
  Report Type: Report from Study
  Country: CA (occurrence: CA)
  Receive Date: 20231204
  Receipt Date: 20231204
  Transmission Date: 20240110
  Serious: Yes (Other)
  Sender: FDA-Public Use
  Company Number: CA-TAKEDA-2020TUS033077

PATIENT
  Age: 78 Year
  Sex: Female

DRUGS (15)
  1. IXAZOMIB [Suspect]
     Active Substance: IXAZOMIB
     Indication: Plasma cell myeloma
     Dosage: 4 MILLIGRAM
     Route: 048
     Dates: start: 20200418, end: 20210403
  2. IXAZOMIB [Suspect]
     Active Substance: IXAZOMIB
     Dosage: 3 MILLIGRAM
     Route: 048
  3. DEXAMETHASONE [Concomitant]
     Active Substance: DEXAMETHASONE
     Dosage: UNK
     Route: 065
  4. ONDANSETRON [Concomitant]
     Active Substance: ONDANSETRON
     Dosage: 16 MILLIGRAM
     Route: 065
  5. VALACYCLOVIR [Concomitant]
     Active Substance: VALACYCLOVIR HYDROCHLORIDE
     Indication: Prophylaxis
     Dosage: 500 MILLIGRAM, QD
     Route: 065
  6. AMITRIPTYLINE [Concomitant]
     Active Substance: AMITRIPTYLINE
     Indication: Post herpetic neuralgia
     Dosage: 10 MILLIGRAM, Q1HR
  7. APIXABAN [Concomitant]
     Active Substance: APIXABAN
     Dosage: 5 MILLIGRAM, BID
     Route: 065
  8. BENADRYL OTC [Concomitant]
     Indication: Nasal pruritus
     Dosage: UNK
     Route: 065
  9. CETIRIZINE [Concomitant]
     Active Substance: CETIRIZINE HYDROCHLORIDE
     Indication: Pruritus
     Dosage: 10 MILLIGRAM, BID
     Route: 065
  10. DILTIAZEM [Concomitant]
     Active Substance: DILTIAZEM
     Indication: Atrial fibrillation
     Dosage: 300 MILLIGRAM, QD
     Route: 065
  11. HYDROCHLOROTHIAZIDE [Concomitant]
     Active Substance: HYDROCHLOROTHIAZIDE
     Dosage: 12.5 MILLIGRAM, QD
     Route: 065
  12. OPTICROM [Concomitant]
     Active Substance: CROMOLYN SODIUM
     Dosage: UNK
     Route: 050
  13. SENOKOT [Concomitant]
     Active Substance: SENNOSIDES
     Dosage: UNK UNK, BID
     Route: 065
  14. SYSTANE (HYPROMELLOSE 2910 (4000 MPA.S)) [Concomitant]
     Active Substance: HYPROMELLOSE 2910 (4000 MPA.S)
     Dosage: UNK
     Route: 050
  15. TYLENOL [Concomitant]
     Active Substance: ACETAMINOPHEN
     Indication: Arthritis
     Dosage: UNK UNK, Q6HR
     Route: 065

REACTIONS (7)
  - Urinary tract infection [Recovered/Resolved]
  - Neuropathy peripheral [Unknown]
  - Nausea [Unknown]
  - Post herpetic neuralgia [Unknown]
  - Pruritus [Not Recovered/Not Resolved]
  - Nasopharyngitis [Unknown]
  - Constipation [Unknown]

NARRATIVE: CASE EVENT DATE: 20210921
